FAERS Safety Report 8803349 (Version 3)
Quarter: 2013Q4

REPORT INFORMATION
  Report Type: Spontaneous
  Country: FR (occurrence: FR)
  Receive Date: 20120924
  Receipt Date: 20131001
  Transmission Date: 20140711
  Serious: Yes (Life-Threatening)
  Sender: FDA-Public Use
  Company Number: FR-JNJFOC-20120905532

PATIENT
  Age: 63 Year
  Sex: Male

DRUGS (5)
  1. REMICADE [Suspect]
     Indication: COLITIS ULCERATIVE
     Route: 042
     Dates: start: 20080505
  2. REMICADE [Suspect]
     Indication: COLITIS ULCERATIVE
     Route: 042
     Dates: end: 20120724
  3. REMICADE [Suspect]
     Indication: COLITIS ULCERATIVE
     Dosage: 25TH INFUSION
     Route: 042
     Dates: start: 20120605
  4. IMUREL [Suspect]
     Indication: SQUAMOUS CELL CARCINOMA
     Route: 065
     Dates: start: 20070717, end: 20110521
  5. CORTICOSTEROIDS NOS [Concomitant]
     Route: 065

REACTIONS (1)
  - Non-Hodgkin^s lymphoma [Recovered/Resolved with Sequelae]
